FAERS Safety Report 10836593 (Version 1)
Quarter: 2015Q1

REPORT INFORMATION
  Report Type: Spontaneous
  Country: IT (occurrence: None)
  Receive Date: 20150218
  Receipt Date: 20150218
  Transmission Date: 20150721
  Serious: Yes (Death, Hospitalization, Other)
  Sender: FDA-Public Use
  Company Number: IT-ZYDUS-006565

PATIENT
  Age: 73 Year
  Sex: Female

DRUGS (2)
  1. ASPIRIN (ASPIRIN) [Suspect]
     Active Substance: ASPIRIN
  2. CLOPIDOGREL [Suspect]
     Active Substance: CLOPIDOGREL BISULFATE
     Indication: ANTIPLATELET THERAPY

REACTIONS (9)
  - Renal failure [None]
  - Thrombotic thrombocytopenic purpura [None]
  - Visceral arterial ischaemia [None]
  - Haemolytic anaemia [None]
  - Gastrointestinal disorder [None]
  - Liver disorder [None]
  - Abdominal tenderness [None]
  - Aortic thrombosis [None]
  - Hepatic ischaemia [None]
